FAERS Safety Report 8470928-4 (Version None)
Quarter: 2012Q2

REPORT INFORMATION
  Report Type: 
  Country: None (occurrence: None)
  Receive Date: 20120323
  Receipt Date: 20111012
  Transmission Date: 20120825
  Serious: Yes (Other)
  Sender: FDA-Public Use
  Company Number: 163-21880-11101492

PATIENT
  Age: 81 Year
  Sex: Male

DRUGS (7)
  1. REVLIMID [Suspect]
     Indication: WALDENSTROM'S MACROGLOBULINAEMIA
     Dosage: 15 MG, QD X 21D/28D, PO; 15MG, QD X 21D/28D, PO; 10 MG, QD X 21D/28D, PO
     Route: 048
     Dates: start: 20090601, end: 20110907
  2. REVLIMID [Suspect]
     Indication: WALDENSTROM'S MACROGLOBULINAEMIA
     Dosage: 15 MG, QD X 21D/28D, PO; 15MG, QD X 21D/28D, PO; 10 MG, QD X 21D/28D, PO
     Route: 048
     Dates: start: 20061001, end: 20070701
  3. REVLIMID [Suspect]
     Indication: WALDENSTROM'S MACROGLOBULINAEMIA
     Dosage: 15 MG, QD X 21D/28D, PO; 15MG, QD X 21D/28D, PO; 10 MG, QD X 21D/28D, PO
     Route: 048
     Dates: start: 20111003
  4. ALLOPURINOL [Concomitant]
  5. CARVEDILOL [Concomitant]
  6. FLOMAX [Concomitant]
  7. FAMOTIDINE [Concomitant]

REACTIONS (1)
  - NEUTROPENIA [None]
